FAERS Safety Report 21273277 (Version 4)
Quarter: 2023Q1

REPORT INFORMATION
  Report Type: Report from Study
  Country: US (occurrence: US)
  Receive Date: 20220831
  Receipt Date: 20230223
  Transmission Date: 20230417
  Serious: Yes (Other)
  Sender: FDA-Public Use
  Company Number: US-002147023-NVSC2022US195415

PATIENT
  Sex: Female

DRUGS (2)
  1. ENTRESTO [Suspect]
     Active Substance: SACUBITRIL\VALSARTAN
     Indication: Product used for unknown indication
     Dosage: 1 DOSAGE FORM, BID (24/26 MG)
     Route: 048
     Dates: start: 20220706
  2. COREG [Concomitant]
     Active Substance: CARVEDILOL
     Indication: Product used for unknown indication
     Dosage: 6.25 MG, BID (PILLS)
     Route: 065

REACTIONS (9)
  - Nephrolithiasis [Recovered/Resolved]
  - Weight fluctuation [Unknown]
  - Urinary tract infection [Unknown]
  - Vascular fragility [Unknown]
  - Blood pressure increased [Unknown]
  - Eye swelling [Unknown]
  - Pain [Recovered/Resolved]
  - Eye contusion [Unknown]
  - Product dose omission issue [Unknown]
